FAERS Safety Report 7093921-5 (Version None)
Quarter: 2010Q4

REPORT INFORMATION
  Report Type: 
  Country: None (occurrence: None)
  Receive Date: 20101102
  Receipt Date: 20101028
  Transmission Date: 20110411
  Serious: Yes (Other)
  Sender: FDA-Public Use
  Company Number: TRP_07363_2010

PATIENT
  Sex: Male
  Weight: 85.2762 kg

DRUGS (6)
  1. INFERGEN [Suspect]
     Indication: HEPATITIS C
     Dosage: 15 UG QD SUBCUTANEOUS
     Route: 058
     Dates: start: 20101022
  2. COPEGUS [Suspect]
     Indication: HEPATITIS C
     Dosage: 1200 MG, DAILY ORAL
     Route: 048
     Dates: start: 20101022
  3. LACTULOSE [Concomitant]
  4. LORTAB [Concomitant]
  5. STACKER II [Concomitant]
  6. HYDROXYZINE HCL [Concomitant]

REACTIONS (5)
  - BACK PAIN [None]
  - MIDDLE INSOMNIA [None]
  - NAUSEA [None]
  - RENAL PAIN [None]
  - SELF-MEDICATION [None]
